FAERS Safety Report 6448894-2 (Version None)
Quarter: 2009Q4

REPORT INFORMATION
  Report Type: 
  Country: None (occurrence: None)
  Receive Date: 20091120
  Receipt Date: 20091111
  Transmission Date: 20100525
  Serious: Yes (Other)
  Sender: FDA-Public Use
  Company Number: JP-PFIZER INC-2009297210

PATIENT

DRUGS (1)
  1. ZITHROMAC SR [Suspect]
     Dosage: 2 G, SINGLE
     Route: 048

REACTIONS (1)
  - ENTEROCOLITIS HAEMORRHAGIC [None]
